FAERS Safety Report 19438159 (Version 2)
Quarter: 2022Q1

REPORT INFORMATION
  Report Type: Spontaneous
  Country: GB (occurrence: GB)
  Receive Date: 20210619
  Receipt Date: 20220208
  Transmission Date: 20220423
  Serious: Yes (Life-Threatening, Hospitalization, Other)
  Sender: FDA-Public Use
  Company Number: GB-MHRA-EYC 00252704

PATIENT
  Age: 3 Decade
  Sex: Female

DRUGS (1)
  1. METFORMIN [Suspect]
     Active Substance: METFORMIN HYDROCHLORIDE
     Indication: Type 2 diabetes mellitus
     Dosage: 500 MILLIGRAM, UNK
     Route: 048

REACTIONS (7)
  - Decreased appetite [Recovering/Resolving]
  - Weight decreased [Recovering/Resolving]
  - Dyspnoea [Recovering/Resolving]
  - Burning sensation [Recovering/Resolving]
  - Anaemia [Recovering/Resolving]
  - Bursitis [Recovering/Resolving]
  - Medication error [Recovering/Resolving]
